FAERS Safety Report 14340792 (Version 2)
Quarter: 2018Q1

REPORT INFORMATION
  Report Type: Report from Study
  Country: US (occurrence: US)
  Receive Date: 20180102
  Receipt Date: 20180110
  Transmission Date: 20180509
  Serious: Yes (Life-Threatening, Other)
  Sender: FDA-Public Use
  Company Number: US-ROCHE-2048603

PATIENT
  Age: 89 Year
  Sex: Male
  Weight: 90.35 kg

DRUGS (17)
  1. AMLODIPINE [Concomitant]
     Active Substance: AMLODIPINE BESYLATE
  2. ESBRIET [Suspect]
     Active Substance: PIRFENIDONE
     Dosage: FOR 1 WEEK
     Route: 048
  3. FOLIC ACID. [Concomitant]
     Active Substance: FOLIC ACID
     Dosage: 400 MG A DAY FOR SEVERAL YEARS; ONGOING: YES
     Route: 048
  4. MECLIZINE [Concomitant]
     Active Substance: MECLIZINE HYDROCHLORIDE
     Dosage: 25 MG AS NEEDED FOR DIZZINESS FOR SEVERAL YEARS
     Route: 048
     Dates: start: 2012
  5. ESBRIET [Suspect]
     Active Substance: PIRFENIDONE
     Indication: IDIOPATHIC PULMONARY FIBROSIS
     Route: 048
     Dates: start: 20171117
  6. ESBRIET [Suspect]
     Active Substance: PIRFENIDONE
     Route: 048
  7. ESBRIET [Suspect]
     Active Substance: PIRFENIDONE
     Dosage: WITH MEALS; ONGOING: UNKNOWN
     Route: 048
     Dates: start: 20171115
  8. BABY ASPIRIN [Concomitant]
     Active Substance: ASPIRIN
     Dosage: 81 MG INE TIME A DAY FOR 8 YEARS; ONGOING: YES
     Route: 048
     Dates: start: 2012
  9. VITAMIN B12 [Concomitant]
     Active Substance: CYANOCOBALAMIN
     Dosage: 500 MG A DAY FOR SEVERAL YEARS; ONGOING: YES
     Route: 048
  10. TAMSULOSIN HCL [Concomitant]
     Active Substance: TAMSULOSIN HYDROCHLORIDE
     Dosage: 0.4 MG A DAY FOR 5-6 YEARS
     Route: 048
  11. ESBRIET [Suspect]
     Active Substance: PIRFENIDONE
     Dosage: 267 MG 2 PILLS THREE TIMES A DAY
     Route: 048
     Dates: start: 20171121
  12. OMEPRAZOLE. [Concomitant]
     Active Substance: OMEPRAZOLE
     Indication: DYSPEPSIA
     Dosage: 40 MG A DAY FOR SEVERAL YEARS
     Route: 048
     Dates: start: 2015
  13. SIMVASTATIN. [Concomitant]
     Active Substance: SIMVASTATIN
     Dosage: 40 MG A DAY FOR 5 YEARS
     Route: 048
     Dates: start: 2012
  14. HYDROCHLOROTHIAZIDE. [Concomitant]
     Active Substance: HYDROCHLOROTHIAZIDE
     Dosage: ONE 12.5MG EVERY THREE WEEKS:ONGOING YES
     Route: 065
     Dates: start: 201706
  15. OXYGEN. [Concomitant]
     Active Substance: OXYGEN
     Dosage: ONGOING YES: AT NIGHT
     Route: 065
  16. ESBRIET [Suspect]
     Active Substance: PIRFENIDONE
     Dosage: FORM STRENGTH: 801MG
     Route: 048
     Dates: start: 20171202, end: 20171221
  17. SIMVASTATIN. [Concomitant]
     Active Substance: SIMVASTATIN
     Indication: BLOOD CHOLESTEROL
     Route: 065

REACTIONS (11)
  - Asthenia [Recovered/Resolved]
  - Malaise [Recovered/Resolved]
  - Thinking abnormal [Recovered/Resolved]
  - Dyspnoea [Recovered/Resolved]
  - Dysstasia [Recovered/Resolved]
  - Loss of consciousness [Recovered/Resolved]
  - Fatigue [Not Recovered/Not Resolved]
  - Dizziness [Not Recovered/Not Resolved]
  - Hypersomnia [Not Recovered/Not Resolved]
  - Decreased appetite [Not Recovered/Not Resolved]
  - Gait inability [Recovered/Resolved]

NARRATIVE: CASE EVENT DATE: 20171218
